FAERS Safety Report 25835342 (Version 1)
Quarter: 2025Q3

REPORT INFORMATION
  Report Type: Spontaneous
  Country: GB (occurrence: GB)
  Receive Date: 20250923
  Receipt Date: 20250923
  Transmission Date: 20251021
  Serious: Yes (Hospitalization)
  Sender: ALKEM
  Company Number: GB-ALKEM LABORATORIES LIMITED-GB-ALKEM-2025-09934

PATIENT
  Age: 84 Year
  Sex: Female

DRUGS (6)
  1. SACUBITRIL\VALSARTAN [Suspect]
     Active Substance: SACUBITRIL\VALSARTAN
     Indication: Heart failure with reduced ejection fraction
     Dosage: UNK, BID
     Route: 065
  2. SACUBITRIL\VALSARTAN [Suspect]
     Active Substance: SACUBITRIL\VALSARTAN
     Route: 065
     Dates: start: 20201209, end: 20201217
  3. FUROSEMIDE [Concomitant]
     Active Substance: FUROSEMIDE
     Indication: Heart failure with reduced ejection fraction
     Dosage: 40 MILLIGRAM, OD
     Route: 065
  4. FUROSEMIDE [Concomitant]
     Active Substance: FUROSEMIDE
     Route: 065
     Dates: start: 20201212
  5. SPIRONOLACTONE [Concomitant]
     Active Substance: SPIRONOLACTONE
     Indication: Heart failure with reduced ejection fraction
     Dosage: 50 MILLIGRAM, OD
     Route: 065
  6. SPIRONOLACTONE [Concomitant]
     Active Substance: SPIRONOLACTONE
     Indication: Hypertension
     Route: 065
     Dates: start: 20201218

REACTIONS (1)
  - Hypoglycaemia [Recovered/Resolved]
